FAERS Safety Report 5540647-2 (Version None)
Quarter: 2007Q4

REPORT INFORMATION
  Report Type: 
  Country: None (occurrence: None)
  Receive Date: 20071129
  Receipt Date: 20070912
  Transmission Date: 20080405
  Serious: Yes (Hospitalization, Other)
  Sender: FDA-Public Use
  Company Number: US200706002995

PATIENT
  Age: 39 Year
  Sex: Male
  Weight: 88.4 kg

DRUGS (2)
  1. ZYPREXA [Suspect]
     Dosage: 10 MG,; 20 MG,
     Dates: start: 20010101, end: 20030101
  2. CITALOPRAM HYDROBROMIDE [Concomitant]

REACTIONS (10)
  - ASTHENIA [None]
  - DIABETES MELLITUS [None]
  - DIABETIC KETOACIDOSIS [None]
  - HYPOTONIA [None]
  - KETONURIA [None]
  - METABOLIC ACIDOSIS [None]
  - PREMATURE AGEING [None]
  - VISION BLURRED [None]
  - WEIGHT DECREASED [None]
  - WEIGHT INCREASED [None]
